FAERS Safety Report 5566619-X (Version None)
Quarter: 2007Q4

REPORT INFORMATION
  Report Type: 
  Country: None (occurrence: None)
  Receive Date: 20071218
  Receipt Date: 20071218
  Transmission Date: 20080405
  Serious: No
  Sender: FDA-Public Use
  Company Number: None

PATIENT
  Age: 63 Year
  Sex: Female
  Weight: 80.7403 kg

DRUGS (7)
  1. LOXAPINE [Suspect]
     Dosage: 15MG PO
     Route: 048
  2. RISPERIDONE [Concomitant]
  3. BENZTROPINE [Concomitant]
  4. MACRODANTIN [Concomitant]
  5. CIPROFLOXACIN HCL [Concomitant]
  6. LORAZEPAM [Concomitant]
  7. MOBAN [Concomitant]

REACTIONS (4)
  - HYPERHIDROSIS [None]
  - SCREAMING [None]
  - SKIN DISCOLOURATION [None]
  - STUPOR [None]
